FAERS Safety Report 9596560 (Version 10)
Quarter: 2018Q1

REPORT INFORMATION
  Report Type: Spontaneous
  Country: US (occurrence: US)
  Receive Date: 20131004
  Receipt Date: 20180316
  Transmission Date: 20180509
  Serious: Yes (Other)
  Sender: FDA-Public Use
  Company Number: US-PFIZER INC-2013282209

PATIENT
  Age: 65 Year
  Sex: Female
  Weight: 86.17 kg

DRUGS (13)
  1. LISINOPRIL/HCTZ [Concomitant]
     Active Substance: HYDROCHLOROTHIAZIDE\LISINOPRIL
     Indication: BLOOD PRESSURE ABNORMAL
     Dosage: 1 DF (5/20 MG), DAILY
     Route: 048
  2. AROMASIN [Suspect]
     Active Substance: EXEMESTANE
     Dosage: 25 MG, 1X/DAY (AT NIGHT)
     Route: 048
     Dates: start: 201210
  3. GLIBURIDE/METFORMIN HYDROCHLORIDE [Concomitant]
     Active Substance: GLYBURIDE\METFORMIN HYDROCHLORIDE
     Indication: DIABETES MELLITUS
     Dosage: 1 DF, 2X/DAY (ONE IN THE MORNING AND ONE AT NIGHT)
  4. GLIBURIDE/METFORMIN HYDROCHLORIDE [Concomitant]
     Active Substance: GLYBURIDE\METFORMIN HYDROCHLORIDE
     Dosage: 500 MG, 2X/DAY
     Route: 048
  5. CENTRUM FOR WOMEN [Concomitant]
     Active Substance: VITAMINS
     Dosage: UNK, ONCE DAILY
  6. SIMVASTATIN. [Concomitant]
     Active Substance: SIMVASTATIN
     Indication: BLOOD CHOLESTEROL INCREASED
     Dosage: UNK
     Dates: end: 201503
  7. METFORMIN [Concomitant]
     Active Substance: METFORMIN HYDROCHLORIDE
     Indication: DIABETES MELLITUS
     Dosage: 500 MG, DAILY
  8. ASPIRIN. [Concomitant]
     Active Substance: ASPIRIN
     Dosage: 81 MG, DAILY
  9. AROMASIN [Suspect]
     Active Substance: EXEMESTANE
     Indication: BREAST CANCER
     Dosage: 25 MG, 1X/DAY (DURING THE DAYTIME)
     Route: 048
     Dates: start: 201210
  10. FISH OIL [Concomitant]
     Active Substance: FISH OIL
     Dosage: 1200 MG, DAILY
  11. AROMASIN [Suspect]
     Active Substance: EXEMESTANE
     Dosage: 25 MG, 1X/DAY (AT NIGHT)
     Route: 048
  12. AROMASIN [Suspect]
     Active Substance: EXEMESTANE
     Dosage: 25 MG, 1X/DAY
     Route: 048
     Dates: start: 2012
  13. VITAMIN D3 [Concomitant]
     Active Substance: CHOLECALCIFEROL
     Indication: BONE DISORDER
     Dosage: 2000 MG, DAILY

REACTIONS (15)
  - Hot flush [Not Recovered/Not Resolved]
  - Fatigue [Unknown]
  - Diabetes mellitus [Unknown]
  - Ocular vascular disorder [Unknown]
  - Feeling hot [Unknown]
  - Weight increased [Unknown]
  - Sinusitis [Not Recovered/Not Resolved]
  - Osteoporosis [Not Recovered/Not Resolved]
  - Weight decreased [Unknown]
  - Hyperhidrosis [Unknown]
  - Cough [Unknown]
  - Thinking abnormal [Unknown]
  - Disease progression [Unknown]
  - Dizziness [Recovered/Resolved]
  - Therapeutic response unexpected [Unknown]

NARRATIVE: CASE EVENT DATE: 2012
